FAERS Safety Report 7972890-7 (Version None)
Quarter: 2011Q4

REPORT INFORMATION
  Report Type: 
  Country: None (occurrence: None)
  Receive Date: 20111213
  Receipt Date: 20110216
  Transmission Date: 20120403
  Serious: No
  Sender: FDA-Public Use
  Company Number: US-MYLANLABS-2011S1003512

PATIENT
  Age: 54 Year
  Sex: Female

DRUGS (2)
  1. DOXYCYCLINE [Suspect]
     Indication: ROSACEA
     Route: 048
  2. DOXYCYCLINE [Suspect]
     Route: 048

REACTIONS (2)
  - HEADACHE [None]
  - RASH [None]
